FAERS Safety Report 5874975-8 (Version None)
Quarter: 2008Q3

REPORT INFORMATION
  Report Type: 
  Country: None (occurrence: None)
  Receive Date: 20080909
  Receipt Date: 20080828
  Transmission Date: 20090109
  Serious: Yes (Hospitalization, Other)
  Sender: FDA-Public Use
  Company Number: US-BAYER-US-2004-033291

PATIENT
  Age: 67 Year
  Sex: Male
  Weight: 91 kg

DRUGS (5)
  1. LEUKINE [Suspect]
     Indication: MALIGNANT MELANOMA
     Route: 058
     Dates: start: 20040817, end: 20040927
  2. THALIDOMIDE [Suspect]
     Indication: MALIGNANT MELANOMA
     Dosage: UNIT DOSE: 300 MG
     Route: 048
     Dates: start: 20040817
  3. HYDROCHLOROTHIAZIDE [Concomitant]
     Route: 048
     Dates: start: 20030807
  4. PEPCID [Concomitant]
     Route: 048
     Dates: start: 20040801, end: 20041001
  5. TUMS [Concomitant]
     Route: 048
     Dates: start: 20040801, end: 20041001

REACTIONS (6)
  - ABASIA [None]
  - CONFUSIONAL STATE [None]
  - DEEP VEIN THROMBOSIS [None]
  - POTENTIATING DRUG INTERACTION [None]
  - PULMONARY EMBOLISM [None]
  - VOMITING [None]
